FAERS Safety Report 12461707 (Version 2)
Quarter: 2016Q3

REPORT INFORMATION
  Report Type: Spontaneous
  Country: RU (occurrence: RU)
  Receive Date: 20160613
  Receipt Date: 20160722
  Transmission Date: 20161109
  Serious: Yes (Other)
  Sender: FDA-Public Use
  Company Number: RU-BAYER-2016-113175

PATIENT
  Age: 32 Year
  Sex: Female

DRUGS (8)
  1. VITAMIN E [Concomitant]
     Active Substance: .ALPHA.-TOCOPHEROL
  2. FERRUM [Concomitant]
     Active Substance: FERROUS FUMARATE
  3. YAZ PLUS [Suspect]
     Active Substance: DROSPIRENONE\ETHINYL ESTRADIOL
     Indication: CYST
     Dosage: UNK
     Route: 048
  4. GINKGO BILOBA [Concomitant]
     Active Substance: GINKGO
  5. YAZ PLUS [Suspect]
     Active Substance: DROSPIRENONE\ETHINYL ESTRADIOL
     Indication: CYST
     Dosage: UNK
     Route: 048
  6. HEPABENE [Concomitant]
  7. MEZYM [PANCREATIN] [Concomitant]
  8. MAALOX ANTACID [Concomitant]
     Active Substance: ALUMINUM HYDROXIDE\DIMETHICONE\MAGNESIUM HYDROXIDE

REACTIONS (13)
  - Gallbladder cholesterolosis [None]
  - Liver disorder [None]
  - Abdominal pain [None]
  - Cholecystitis acute [None]
  - Weight increased [None]
  - Suspected counterfeit product [None]
  - Off label use [None]
  - Breast pain [None]
  - Adverse event [None]
  - Cyst [None]
  - Breast swelling [None]
  - Loss of libido [None]
  - Nausea [None]
